FAERS Safety Report 19332895 (Version 1)
Quarter: 2021Q2

REPORT INFORMATION
  Report Type: Report from Study
  Country: BR (occurrence: BR)
  Receive Date: 20210529
  Receipt Date: 20210529
  Transmission Date: 20210717
  Serious: Yes (Hospitalization, Other)
  Sender: FDA-Public Use
  Company Number: NVSC2021BR117165

PATIENT
  Age: 53 Year
  Sex: Male

DRUGS (1)
  1. DIOVAN AMLO FIX [Suspect]
     Active Substance: AMLODIPINE\VALSARTAN
     Indication: BLOOD PRESSURE ABNORMAL
     Dosage: UNK (320/5)
     Route: 065

REACTIONS (2)
  - Throat cancer [Unknown]
  - Illness [Unknown]

NARRATIVE: CASE EVENT DATE: 202105
